FAERS Safety Report 17109179 (Version 1)
Quarter: 2019Q4

REPORT INFORMATION
  Report Type: Spontaneous
  Country: FR (occurrence: FR)
  Receive Date: 20191204
  Receipt Date: 20191204
  Transmission Date: 20200122
  Serious: Yes (Other)
  Sender: FDA-Public Use
  Company Number: FR-TEVA-2019-FR-1144618

PATIENT
  Age: 66 Year
  Sex: Male
  Weight: 65 kg

DRUGS (11)
  1. NATULAN [Suspect]
     Active Substance: PROCARBAZINE HYDROCHLORIDE
     Indication: ANAPLASTIC ASTROCYTOMA
     Dosage: 100 MG PER DAY
     Route: 048
     Dates: start: 20190905, end: 20190917
  2. CORTANCYL 20 MG, COMPRIME [Concomitant]
     Active Substance: PREDNISONE
  3. LEVETIRACETAM MYLAN PHARMA 500 MG, COMPRIME PELLICULE [Suspect]
     Active Substance: LEVETIRACETAM
     Indication: EPILEPSY
     Route: 048
     Dates: start: 20190718, end: 20191028
  4. INDAPAMIDE HEMIHYDRATE [Concomitant]
     Active Substance: INDAPAMIDE HEMIHYDRATE
  5. DAFALGAN [Suspect]
     Active Substance: ACETAMINOPHEN
     Indication: HEADACHE
     Dosage: 2 DOSAGE FORMS PER DAY
     Route: 048
     Dates: start: 20190928, end: 20191017
  6. AVASTIN [Suspect]
     Active Substance: BEVACIZUMAB
     Indication: ANAPLASTIC ASTROCYTOMA
     Dosage: 700 MG, 1 CYCLICAL
     Route: 042
     Dates: start: 20191002, end: 20191024
  7. BELUSTINE 40 MG, GELULE [Suspect]
     Active Substance: LOMUSTINE
     Indication: ANAPLASTIC ASTROCYTOMA
     Dosage: 160 MG, 1CYCLICAL
     Route: 048
     Dates: start: 20190828
  8. PAROXETINE ARROW 20 MG, COMPRIME PELLICULE SECABLE [Suspect]
     Active Substance: PAROXETINE HYDROCHLORIDE
     Indication: PRODUCT USED FOR UNKNOWN INDICATION
     Dosage: 20 MG PER DAY
     Route: 048
     Dates: start: 20191003, end: 20191018
  9. PERINDOPRIL [Concomitant]
     Active Substance: PERINDOPRIL
  10. VINCRISTINE HOSPIRA 2 MG/2 ML, SOLUTION INJECTABLE [Suspect]
     Active Substance: VINCRISTINE SULFATE
     Indication: ANAPLASTIC ASTROCYTOMA
     Dosage: 1.5 MG, 1 CYCLICAL
     Route: 042
     Dates: start: 20190904, end: 20190925
  11. ONDANSETRON [Concomitant]
     Active Substance: ONDANSETRON

REACTIONS (2)
  - Cholestasis [Recovering/Resolving]
  - Hepatocellular injury [Recovering/Resolving]

NARRATIVE: CASE EVENT DATE: 20191015
